FAERS Safety Report 7589447-2 (Version None)
Quarter: 2011Q3

REPORT INFORMATION
  Report Type: 
  Country: None (occurrence: None)
  Receive Date: 20110705
  Receipt Date: 20110622
  Transmission Date: 20111222
  Serious: Yes (Other)
  Sender: FDA-Public Use
  Company Number: US-ROCHE-769885

PATIENT
  Sex: Female
  Weight: 56.7 kg

DRUGS (1)
  1. ACCUTANE [Suspect]
     Indication: ACNE
     Dosage: ALTERNATE DAYS
     Route: 065
     Dates: start: 20031216, end: 20040401

REACTIONS (4)
  - INFLAMMATORY BOWEL DISEASE [None]
  - COLITIS [None]
  - DEPRESSION [None]
  - COLITIS ULCERATIVE [None]
